FAERS Safety Report 20625626 (Version 1)
Quarter: 2022Q1

REPORT INFORMATION
  Report Type: Spontaneous
  Country: US (occurrence: None)
  Receive Date: 20220323
  Receipt Date: 20220323
  Transmission Date: 20220423
  Serious: No
  Sender: FDA-Public Use
  Company Number: US-ROCHE-2998144

PATIENT
  Sex: Male
  Weight: 63.560 kg

DRUGS (6)
  1. ERIVEDGE [Suspect]
     Active Substance: VISMODEGIB
     Indication: Basal cell carcinoma
     Route: 048
  2. BETADINE [Concomitant]
     Active Substance: POVIDONE-IODINE
  3. FLUOROURACIL [Concomitant]
     Active Substance: FLUOROURACIL
  4. FUROSEMIDE [Concomitant]
     Active Substance: FUROSEMIDE
  5. LOSARTAN [Concomitant]
     Active Substance: LOSARTAN
  6. LOVASTATIN [Concomitant]
     Active Substance: LOVASTATIN

REACTIONS (1)
  - Diarrhoea [Unknown]
